FAERS Safety Report 4955067-9 (Version None)
Quarter: 2006Q1

REPORT INFORMATION
  Report Type: 
  Country: None (occurrence: None)
  Receive Date: 20060322
  Receipt Date: 20060303
  Transmission Date: 20060701
  Serious: Yes (Hospitalization)
  Sender: FDA-Public Use
  Company Number: US200603001185

PATIENT
  Sex: Female

DRUGS (1)
  1. HUMULIN R [Suspect]
     Dosage: AS NEEDED
     Dates: start: 19980101

REACTIONS (7)
  - ASTHMA [None]
  - BLOOD GLUCOSE INCREASED [None]
  - CONDITION AGGRAVATED [None]
  - OSTEOPOROSIS [None]
  - SPINAL FRACTURE [None]
  - VIRAL INFECTION [None]
  - VISUAL ACUITY REDUCED [None]
